FAERS Safety Report 25454568 (Version 3)
Quarter: 2025Q4

REPORT INFORMATION
  Report Type: Report from Study
  Country: US (occurrence: US)
  Receive Date: 20250619
  Receipt Date: 20251222
  Transmission Date: 20260118
  Serious: Yes (Hospitalization, Other)
  Sender: ROCHE
  Company Number: US-ROCHE-10000202242

PATIENT
  Age: 65 Year
  Sex: Female

DRUGS (4)
  1. ACTEMRA [Suspect]
     Active Substance: TOCILIZUMAB
     Indication: Noninfective chorioretinitis
     Dosage: INJECT THE CONTENTS OF ONE DEVICE UNDER THE SKIN ONCE WEEKLY
     Route: 058
  2. ACTEMRA [Suspect]
     Active Substance: TOCILIZUMAB
     Indication: Noninfective chorioretinitis
  3. ACTEMRA [Suspect]
     Active Substance: TOCILIZUMAB
     Indication: Uveitis
  4. ACTEMRA [Suspect]
     Active Substance: TOCILIZUMAB
     Indication: Iridocyclitis

REACTIONS (8)
  - Peripheral venous disease [Unknown]
  - Uveitis [Unknown]
  - Glaucoma [Unknown]
  - Parkinson^s disease [Unknown]
  - Off label use [Unknown]
  - Fall [Unknown]
  - Balance disorder [Unknown]
  - Open globe injury [Unknown]
